FAERS Safety Report 8184440-3 (Version None)
Quarter: 2012Q1

REPORT INFORMATION
  Report Type: 
  Country: None (occurrence: None)
  Receive Date: 20120305
  Receipt Date: 20120229
  Transmission Date: 20120608
  Serious: Yes (Hospitalization)
  Sender: FDA-Public Use
  Company Number: US-ABBOTT-12P-163-0908675-00

PATIENT
  Sex: Female

DRUGS (7)
  1. HUMIRA [Suspect]
     Route: 058
     Dates: start: 20111212, end: 20111212
  2. PRILOSEC [Concomitant]
     Indication: PRODUCT USED FOR UNKNOWN INDICATION
  3. HUMIRA [Suspect]
     Indication: CROHN'S DISEASE
     Route: 058
     Dates: start: 20111128, end: 20111128
  4. HUMIRA [Suspect]
     Route: 058
     Dates: start: 20111226
  5. LORTAB [Concomitant]
     Indication: PAIN
  6. CALCIUM +D [Concomitant]
     Indication: PRODUCT USED FOR UNKNOWN INDICATION
  7. ALLEGRA [Concomitant]
     Indication: HYPERSENSITIVITY

REACTIONS (5)
  - COLITIS [None]
  - MUSCLE SPASMS [None]
  - HAEMATOCHEZIA [None]
  - ABDOMINAL PAIN [None]
  - DIARRHOEA [None]
